FAERS Safety Report 9299519 (Version 1)
Quarter: 2013Q2

REPORT INFORMATION
  Report Type: Spontaneous
  Country: US (occurrence: US)
  Receive Date: 20130521
  Receipt Date: 20130521
  Transmission Date: 20140414
  Serious: No
  Sender: FDA-Public Use
  Company Number: US-009507513-1305USA011295

PATIENT
  Sex: Female
  Weight: 79.37 kg

DRUGS (1)
  1. IMPLANON [Suspect]
     Indication: CONTRACEPTION
     Dosage: LEFT ARM IN BICEP REGION
     Route: 059

REACTIONS (1)
  - Scoliosis [Unknown]
